FAERS Safety Report 10222835 (Version 2)
Quarter: 2014Q2

REPORT INFORMATION
  Report Type: Report from Study
  Country: FR (occurrence: FR)
  Receive Date: 20140606
  Receipt Date: 20140606
  Transmission Date: 20141212
  Serious: Yes (Other)
  Sender: FDA-Public Use
  Company Number: FR-CELGENEUS-056-C5013-13054841

PATIENT
  Age: 85 Year
  Sex: Female
  Weight: 61 kg

DRUGS (20)
  1. THALIDOMIDE [Suspect]
     Indication: PLASMA CELL MYELOMA
     Dosage: 100 MILLIGRAM
     Route: 048
     Dates: start: 20081001, end: 20100227
  2. REVLIMID [Suspect]
     Indication: PLASMA CELL MYELOMA
     Dosage: 15 MILLIGRAM
     Route: 048
     Dates: start: 20111102
  3. DEXAMETHASONE [Suspect]
     Indication: PLASMA CELL MYELOMA
     Dosage: 20 MILLIGRAM
     Route: 065
     Dates: start: 20111102, end: 20120201
  4. MELPHALAN [Suspect]
     Indication: PLASMA CELL MYELOMA
     Dosage: 12 MILLIGRAM
     Route: 065
     Dates: start: 20081001, end: 20100120
  5. PREDNISONE [Suspect]
     Indication: PLASMA CELL MYELOMA
     Dosage: 125 MILLIGRAM
     Route: 065
     Dates: start: 20081001, end: 20100120
  6. ANTITHROMBOTIC AGENTS [Concomitant]
     Indication: THROMBOSIS PROPHYLAXIS
     Route: 065
  7. EPOETINA ALFA [Concomitant]
     Indication: ANAEMIA
     Route: 065
     Dates: start: 20081009
  8. SALINE MIXTURE [Concomitant]
     Indication: VOMITING
     Route: 065
     Dates: start: 20081007
  9. CANDESARTAN W/HYDROCHLOROTHIAZIDE [Concomitant]
     Indication: HYPERTENSION
     Route: 065
     Dates: start: 20070221
  10. AMLODIPINE [Concomitant]
     Indication: ANGINA PECTORIS
     Route: 065
     Dates: start: 20070221
  11. PRAVASTATIN [Concomitant]
     Indication: HYPERCHOLESTEROLAEMIA
     Route: 065
     Dates: start: 20070221
  12. ACIDI SALICYLICI [Concomitant]
     Indication: THROMBOSIS PROPHYLAXIS
     Route: 065
     Dates: start: 20070221
  13. ZOPLICONE [Concomitant]
     Indication: INSOMNIA
     Route: 065
     Dates: start: 20070221
  14. ZOPLICONE [Concomitant]
     Dosage: 7.5 MILLIGRAM
     Route: 048
     Dates: start: 20081109
  15. RABEPRAZOL [Concomitant]
     Indication: GASTRIC ULCER
     Route: 065
     Dates: start: 20070221
  16. TRAMADOL [Concomitant]
     Indication: BONE PAIN
     Route: 065
     Dates: start: 20070221
  17. TRAMADOL [Concomitant]
     Dosage: 400 MILLIGRAM
     Route: 048
     Dates: start: 20081206
  18. ALPRAZOLAM [Concomitant]
     Indication: ANXIETY
     Dosage: .25 MILLIGRAM
     Route: 048
     Dates: start: 20070221
  19. CALCIUM [Concomitant]
     Indication: OSTEOPOROSIS
     Dosage: 1000 MILLIGRAM
     Route: 048
     Dates: start: 200702
  20. TINZAPARIN [Concomitant]
     Indication: THROMBOSIS PROPHYLAXIS
     Dosage: 10000 IU (INTERNATIONAL UNIT)
     Route: 058
     Dates: start: 20090331

REACTIONS (2)
  - Squamous cell carcinoma of skin [Not Recovered/Not Resolved]
  - Squamous cell carcinoma of skin [Recovered/Resolved]
